FAERS Safety Report 13977481 (Version 1)
Quarter: 2017Q3

REPORT INFORMATION
  Report Type: Spontaneous
  Country: US (occurrence: None)
  Receive Date: 20170915
  Receipt Date: 20170915
  Transmission Date: 20171128
  Serious: No
  Sender: FDA-Public Use
  Company Number: None

PATIENT
  Age: 29 Year
  Sex: Female
  Weight: 101.15 kg

DRUGS (4)
  1. DESVENLAFAXINE SUCCINATE, 50 MG [Suspect]
     Active Substance: DESVENLAFAXINE SUCCINATE
     Indication: POST-TRAUMATIC STRESS DISORDER
  2. DESVENLAFAXINE SUCCINATE, 50 MG [Suspect]
     Active Substance: DESVENLAFAXINE SUCCINATE
     Indication: MAJOR DEPRESSION
  3. PRISTIQ EXTENDED-RELEASE [Concomitant]
     Active Substance: DESVENLAFAXINE SUCCINATE
  4. DESVENLAFAXINE SUCCINATE, 50 MG [Suspect]
     Active Substance: DESVENLAFAXINE SUCCINATE
     Indication: GENERALISED ANXIETY DISORDER

REACTIONS (4)
  - Nausea [None]
  - Product substitution issue [None]
  - Tearfulness [None]
  - Headache [None]

NARRATIVE: CASE EVENT DATE: 20170915
